FAERS Safety Report 24581193 (Version 1)
Quarter: 2024Q4

REPORT INFORMATION
  Report Type: Spontaneous
  Country: US (occurrence: None)
  Receive Date: 20241105
  Receipt Date: 20241105
  Transmission Date: 20250115
  Serious: Yes (Hospitalization)
  Sender: Public
  Company Number: None

PATIENT
  Age: 71 Year
  Sex: Female
  Weight: 102.8 kg

DRUGS (18)
  1. ABEMACICLIB [Suspect]
     Active Substance: ABEMACICLIB
     Indication: Oestrogen receptor assay positive
     Dosage: FREQUENCY : TWICE A DAY;?
     Route: 048
     Dates: start: 20240619, end: 20241025
  2. ABEMACICLIB [Suspect]
     Active Substance: ABEMACICLIB
     Indication: Breast cancer female
  3. LETROZOLE [Concomitant]
     Active Substance: LETROZOLE
     Dates: start: 20240327, end: 20241027
  4. ELIQUIS [Concomitant]
     Active Substance: APIXABAN
     Dates: start: 20240507
  5. DILTIAZEM [Concomitant]
     Active Substance: DILTIAZEM
     Dates: start: 20240624
  6. GABAPENTIN [Concomitant]
     Active Substance: GABAPENTIN
     Dates: start: 20240103
  7. METFORMIN [Concomitant]
     Active Substance: METFORMIN HYDROCHLORIDE
     Dates: start: 20190225
  8. OMEPRAZOLE [Concomitant]
     Active Substance: OMEPRAZOLE
     Dates: start: 20240716
  9. SERTRALINE [Concomitant]
     Active Substance: SERTRALINE HYDROCHLORIDE
     Dates: start: 20231226
  10. ATORVASTATIN [Concomitant]
     Active Substance: ATORVASTATIN
     Dates: start: 20190225
  11. VITAMIN D3 [Concomitant]
     Active Substance: CHOLECALCIFEROL
     Dates: start: 20240124
  12. Diphenhydramine- Acetaminophen [Concomitant]
     Dates: start: 20240104
  13. PROCHLORPERAZINE [Concomitant]
     Active Substance: PROCHLORPERAZINE
     Dates: start: 20231226
  14. ONDANSETRON [Concomitant]
     Active Substance: ONDANSETRON
     Dates: start: 20231222, end: 20240618
  15. INSULIN NOS [Concomitant]
     Active Substance: INSULIN NOS
     Dates: start: 20231226
  16. OZEMPIC [Concomitant]
     Active Substance: SEMAGLUTIDE
     Dates: start: 20240617, end: 20240813
  17. LORATADINE [Concomitant]
     Active Substance: LORATADINE
     Dates: start: 20231226, end: 20240618
  18. Ocuvite Preserve [Concomitant]
     Dates: start: 20240104

REACTIONS (4)
  - Dyspnoea [None]
  - Chest pain [None]
  - Pleuritic pain [None]
  - Pleural effusion [None]

NARRATIVE: CASE EVENT DATE: 20241028
